FAERS Safety Report 23188620 (Version 2)
Quarter: 2023Q4

REPORT INFORMATION
  Report Type: Spontaneous
  Country: US (occurrence: US)
  Receive Date: 20231115
  Receipt Date: 20231211
  Transmission Date: 20240110
  Serious: No
  Sender: FDA-Public Use
  Company Number: US-PFIZER INC-202300358173

PATIENT
  Age: 69 Year
  Sex: Female
  Weight: 101.6 kg

DRUGS (1)
  1. IBRANCE [Suspect]
     Active Substance: PALBOCICLIB
     Indication: Neoplasm malignant
     Dosage: 125MG TABLET ONCE A DAY BY MOUTH, THREE WEEKS ON AND ONE WEEK OFF
     Route: 048

REACTIONS (2)
  - Blister [Not Recovered/Not Resolved]
  - Rash [Unknown]

NARRATIVE: CASE EVENT DATE: 20230801
